FAERS Safety Report 6556499-8 (Version None)
Quarter: 2010Q1

REPORT INFORMATION
  Report Type: 
  Country: None (occurrence: None)
  Receive Date: 20100128
  Receipt Date: 20100120
  Transmission Date: 20100710
  Serious: Yes (Disabling)
  Sender: FDA-Public Use
  Company Number: JP-ELI_LILLY_AND_COMPANY-JP201001004461

PATIENT
  Age: 75 Year
  Sex: Female

DRUGS (1)
  1. GEMZAR [Suspect]
     Indication: MALIGNANT NEOPLASM OF AMPULLA OF VATER
     Dosage: 1000 MG/M2, OTHER
     Route: 042
     Dates: start: 20090801

REACTIONS (1)
  - NEUROPATHY PERIPHERAL [None]
